FAERS Safety Report 15850699 (Version 1)
Quarter: 2019Q1

REPORT INFORMATION
  Report Type: Report from Study
  Country: US (occurrence: US)
  Receive Date: 20190121
  Receipt Date: 20190121
  Transmission Date: 20190417
  Serious: Yes (Death)
  Sender: FDA-Public Use
  Company Number: US-ACTELION-A-NJ2019-184879

PATIENT
  Age: 82 Year
  Sex: Male

DRUGS (8)
  1. VALSARTAN. [Concomitant]
     Active Substance: VALSARTAN
  2. ADEMPAS [Concomitant]
     Active Substance: RIOCIGUAT
  3. IRON [Concomitant]
     Active Substance: IRON
  4. EDARBI [Concomitant]
     Active Substance: AZILSARTAN KAMEDOXOMIL
  5. PREDNISONE. [Concomitant]
     Active Substance: PREDNISONE
  6. NIFEDICAL XL [Concomitant]
     Active Substance: NIFEDIPINE
  7. LEVOFLOXACIN. [Concomitant]
     Active Substance: LEVOFLOXACIN
  8. OPSUMIT [Suspect]
     Active Substance: MACITENTAN
     Indication: CHRONIC KIDNEY DISEASE
     Dosage: 10 MG, UNK
     Route: 048

REACTIONS (1)
  - Death [Fatal]
